FAERS Safety Report 4697298-1 (Version None)
Quarter: 2005Q2

REPORT INFORMATION
  Report Type: 
  Country: None (occurrence: None)
  Receive Date: 20050621
  Receipt Date: 20050621
  Transmission Date: 20051028
  Serious: No
  Sender: FDA-Public Use
  Company Number: None

PATIENT
  Age: 48 Year
  Sex: Male
  Weight: 72 kg

DRUGS (1)
  1. ATAZANAVIR    150MG     BMS [Suspect]
     Indication: HIV INFECTION
     Dosage: 300MG  DAILY   ORAL
     Route: 048
     Dates: start: 20050301, end: 20050304

REACTIONS (1)
  - HYPERBILIRUBINAEMIA [None]
